FAERS Safety Report 20517347 (Version 1)
Quarter: 2022Q1

REPORT INFORMATION
  Report Type: Spontaneous
  Country: CN (occurrence: CN)
  Receive Date: 20220225
  Receipt Date: 20220225
  Transmission Date: 20220423
  Serious: Yes (Other)
  Sender: FDA-Public Use
  Company Number: CN-SA-SAC20220221000558

PATIENT
  Sex: Female

DRUGS (2)
  1. AMARYL [Suspect]
     Active Substance: GLIMEPIRIDE
     Indication: Diabetes mellitus
     Dosage: 0.5 DF, QD
     Route: 048
  2. AMARYL [Suspect]
     Active Substance: GLIMEPIRIDE
     Dosage: 1 DF, QD
     Route: 048

REACTIONS (2)
  - Diabetes mellitus inadequate control [Unknown]
  - Product use issue [Unknown]
